FAERS Safety Report 19551251 (Version 1)
Quarter: 2021Q3

REPORT INFORMATION
  Report Type: Spontaneous
  Country: US (occurrence: US)
  Receive Date: 20210715
  Receipt Date: 20210715
  Transmission Date: 20211014
  Serious: Yes (Hospitalization)
  Sender: FDA-Public Use
  Company Number: None

PATIENT
  Age: 76 Year
  Sex: Male

DRUGS (9)
  1. OZEMPIC [Concomitant]
     Active Substance: SEMAGLUTIDE
  2. CONTOUR TES [Concomitant]
  3. ATORVASTATIN [Concomitant]
     Active Substance: ATORVASTATIN
     Indication: NEOPLASM MALIGNANT
  4. FENOFIBRATE. [Concomitant]
     Active Substance: FENOFIBRATE
  5. JANUVIA [Concomitant]
     Active Substance: SITAGLIPTIN PHOSPHATE
  6. LOSARTAN. [Concomitant]
     Active Substance: LOSARTAN
  7. GLIMEPIRIDE. [Concomitant]
     Active Substance: GLIMEPIRIDE
  8. ERLEADA [Suspect]
     Active Substance: APALUTAMIDE
     Indication: NEOPLASM MALIGNANT
     Route: 048
     Dates: start: 20210520
  9. METOPROLOL. [Concomitant]
     Active Substance: METOPROLOL

REACTIONS (2)
  - Knee operation [None]
  - Therapy interrupted [None]

NARRATIVE: CASE EVENT DATE: 20210510
